FAERS Safety Report 6756836-5 (Version None)
Quarter: 2010Q2

REPORT INFORMATION
  Report Type: 
  Country: None (occurrence: None)
  Receive Date: 20100604
  Receipt Date: 20100602
  Transmission Date: 20101027
  Serious: Yes (Death)
  Sender: FDA-Public Use
  Company Number: PHHY2010MX35904

PATIENT
  Sex: Male

DRUGS (1)
  1. ZOMETA [Suspect]
     Dosage: 1 INFUSION (4 MG/100ML) MONTHLY
     Route: 042
     Dates: start: 20091106, end: 20100306

REACTIONS (1)
  - DEATH [None]
